FAERS Safety Report 7409555-6 (Version None)
Quarter: 2011Q2

REPORT INFORMATION
  Report Type: 
  Country: None (occurrence: None)
  Receive Date: 20110412
  Receipt Date: 20110405
  Transmission Date: 20111010
  Serious: Yes (Hospitalization, Disabling)
  Sender: FDA-Public Use
  Company Number: US-MERCK-1011USA00098

PATIENT
  Age: 55 Year
  Sex: Female

DRUGS (6)
  1. FOSAMAX [Suspect]
     Route: 048
     Dates: start: 20080601, end: 20090101
  2. FOSAMAX [Suspect]
     Route: 048
     Dates: start: 20080601, end: 20090101
  3. BONIVA [Suspect]
     Indication: OSTEOPOROSIS
     Route: 048
     Dates: start: 20060609, end: 20070216
  4. FOSAMAX PLUS D [Suspect]
     Indication: OSTEOPOROSIS
     Route: 048
     Dates: start: 20070618, end: 20080605
  5. FOSAMAX [Suspect]
     Indication: OSTEOPENIA
     Route: 048
     Dates: start: 20070216, end: 20070618
  6. FOSAMAX [Suspect]
     Indication: OSTEOPOROSIS
     Route: 048
     Dates: start: 20070216, end: 20070618

REACTIONS (12)
  - OSTEONECROSIS OF JAW [None]
  - PERIODONTAL DISEASE [None]
  - ORAL PAIN [None]
  - CHRONIC SINUSITIS [None]
  - IMPAIRED HEALING [None]
  - LOOSE TOOTH [None]
  - ORAL INFECTION [None]
  - ABDOMINAL PAIN UPPER [None]
  - ABSCESS ORAL [None]
  - SINUSITIS [None]
  - JAW DISORDER [None]
  - LACERATION [None]
